FAERS Safety Report 25230340 (Version 1)
Quarter: 2025Q2

REPORT INFORMATION
  Report Type: Spontaneous
  Country: US (occurrence: US)
  Receive Date: 20250423
  Receipt Date: 20250423
  Transmission Date: 20250716
  Serious: Yes (Hospitalization)
  Sender: VERTEX
  Company Number: US-VERTEX PHARMACEUTICALS-2025-006465

PATIENT
  Sex: Male

DRUGS (1)
  1. ORKAMBI [Suspect]
     Active Substance: IVACAFTOR\LUMACAFTOR
     Indication: Cystic fibrosis
     Route: 048

REACTIONS (7)
  - Pseudomonas infection [Unknown]
  - Umbilical hernia [Unknown]
  - Discomfort [Unknown]
  - Irritability [Unknown]
  - Infection [Unknown]
  - Vitamin D decreased [Unknown]
  - Haemoglobin decreased [Unknown]
